FAERS Safety Report 4875483-3 (Version None)
Quarter: 2006Q1

REPORT INFORMATION
  Report Type: 
  Country: None (occurrence: None)
  Receive Date: 20060109
  Receipt Date: 20051229
  Transmission Date: 20060701
  Serious: Yes (Other)
  Sender: FDA-Public Use
  Company Number: CH-BRISTOL-MYERS SQUIBB COMPANY-13233051

PATIENT
  Age: 29 Year
  Sex: Female

DRUGS (15)
  1. APROVEL [Suspect]
     Indication: HYPERTENSION
     Route: 048
  2. APROVEL [Suspect]
     Indication: RENAL DISORDER
     Route: 048
  3. LASIX [Suspect]
     Indication: HYPERTENSION
     Route: 048
  4. LASIX [Suspect]
     Indication: RENAL DISORDER
     Route: 048
  5. MIGRALEVE [Suspect]
     Indication: MIGRAINE
     Route: 048
  6. MIMPARA [Suspect]
     Indication: RENAL IMPAIRMENT
     Route: 048
  7. SORTIS [Suspect]
     Indication: METABOLIC DISORDER
     Route: 048
  8. NEXIUM [Concomitant]
     Indication: GASTROINTESTINAL DISORDER
     Route: 048
  9. BELOC [Concomitant]
     Indication: HYPERTENSION
     Route: 048
  10. BELOC [Concomitant]
     Indication: RENAL DISORDER
     Route: 048
  11. ASPIRIN [Concomitant]
     Indication: PROPHYLAXIS
     Route: 048
  12. ROCALTROL [Concomitant]
     Indication: RENAL IMPAIRMENT
     Route: 048
  13. RENAGEL [Concomitant]
     Indication: RENAL IMPAIRMENT
     Route: 048
  14. DIALVIT [Concomitant]
     Route: 048
  15. CALCIUM ACETATE [Concomitant]
     Indication: RENAL IMPAIRMENT
     Route: 048

REACTIONS (2)
  - ABORTION INDUCED [None]
  - DRUG EXPOSURE DURING PREGNANCY [None]
